FAERS Safety Report 11688706 (Version 5)
Quarter: 2016Q3

REPORT INFORMATION
  Report Type: Report from Study
  Country: CA (occurrence: CA)
  Receive Date: 20151102
  Receipt Date: 20160913
  Transmission Date: 20161109
  Serious: Yes (Other)
  Sender: FDA-Public Use
  Company Number: CA-ROCHE-1629292

PATIENT
  Sex: Male

DRUGS (29)
  1. AZOPT [Concomitant]
     Active Substance: BRINZOLAMIDE
  2. LEVOCARB [Concomitant]
     Active Substance: CARBIDOPA\LEVODOPA
  3. PREDNISONE. [Concomitant]
     Active Substance: PREDNISONE
  4. CLONIDINE. [Concomitant]
     Active Substance: CLONIDINE
  5. LISINOPRIL. [Concomitant]
     Active Substance: LISINOPRIL
  6. EFFEXOR [Concomitant]
     Active Substance: VENLAFAXINE HYDROCHLORIDE
  7. RISPERDAL [Concomitant]
     Active Substance: RISPERIDONE
  8. TELMISARTAN. [Concomitant]
     Active Substance: TELMISARTAN
  9. ACETYLSALICYLIC ACID [Concomitant]
     Active Substance: ASPIRIN
  10. HYDRALAZINE [Concomitant]
     Active Substance: HYDRALAZINE HYDROCHLORIDE
  11. VOLTAREN [Concomitant]
     Active Substance: DICLOFENAC SODIUM
  12. LIPITOR [Concomitant]
     Active Substance: ATORVASTATIN CALCIUM
  13. ADALAT [Concomitant]
     Active Substance: NIFEDIPINE
  14. DOXAZOSIN [Concomitant]
     Active Substance: DOXAZOSIN\DOXAZOSIN MESYLATE
  15. EFUDEX [Concomitant]
     Active Substance: FLUOROURACIL
  16. METOPROLOL. [Concomitant]
     Active Substance: METOPROLOL
  17. ACTEMRA [Suspect]
     Active Substance: TOCILIZUMAB
     Route: 042
     Dates: start: 20160104
  18. FOLIC ACID. [Concomitant]
     Active Substance: FOLIC ACID
  19. RABEPRAZOLE [Concomitant]
     Active Substance: RABEPRAZOLE
  20. SYNTHROID [Concomitant]
     Active Substance: LEVOTHYROXINE SODIUM
  21. DETROL [Concomitant]
     Active Substance: TOLTERODINE TARTRATE
  22. METHOTREXATE. [Concomitant]
     Active Substance: METHOTREXATE
  23. HYDROXYCHLOROQUINE [Concomitant]
     Active Substance: HYDROXYCHLOROQUINE
  24. MIRTAZAPINE. [Concomitant]
     Active Substance: MIRTAZAPINE
  25. HCTZ [Concomitant]
     Active Substance: HYDROCHLOROTHIAZIDE
  26. CELEBREX [Concomitant]
     Active Substance: CELECOXIB
  27. ACTEMRA [Suspect]
     Active Substance: TOCILIZUMAB
     Indication: RHEUMATOID ARTHRITIS
     Route: 042
     Dates: start: 20150507
  28. OXAZEPAM. [Concomitant]
     Active Substance: OXAZEPAM
  29. DOCUSATE [Concomitant]
     Active Substance: DOCUSATE

REACTIONS (4)
  - Kidney infection [Not Recovered/Not Resolved]
  - Intestinal polyp [Not Recovered/Not Resolved]
  - Arthralgia [Not Recovered/Not Resolved]
  - Prostatic disorder [Unknown]
